FAERS Safety Report 14074021 (Version 1)
Quarter: 2017Q4

REPORT INFORMATION
  Report Type: Spontaneous
  Country: BR (occurrence: BR)
  Receive Date: 20171011
  Receipt Date: 20171011
  Transmission Date: 20180321
  Serious: Yes (Hospitalization, Disabling, Other)
  Sender: FDA-Public Use
  Company Number: BR-PFIZER INC-2017435694

PATIENT
  Age: 26 Year
  Sex: Male

DRUGS (6)
  1. CARBAMAZEPINE. [Concomitant]
     Active Substance: CARBAMAZEPINE
  2. PHENOBARBITAL. [Concomitant]
     Active Substance: PHENOBARBITAL
  3. VALPROIC ACID. [Concomitant]
     Active Substance: VALPROIC ACID
  4. TALIGLUCERASE ALFA [Suspect]
     Active Substance: TALIGLUCERASE ALFA
     Indication: GAUCHER^S DISEASE TYPE III
     Dosage: 60 IU/KG, EVERY 2 WEEKS
     Route: 042
  5. CLONAZEPAM. [Concomitant]
     Active Substance: CLONAZEPAM
  6. LAMOTRIGINE. [Concomitant]
     Active Substance: LAMOTRIGINE

REACTIONS (6)
  - Wheelchair user [Not Recovered/Not Resolved]
  - Walking disability [Not Recovered/Not Resolved]
  - Neurosyphilis [Recovered/Resolved]
  - Drug dose omission [Not Recovered/Not Resolved]
  - Seizure [Not Recovered/Not Resolved]
  - Condition aggravated [Not Recovered/Not Resolved]

NARRATIVE: CASE EVENT DATE: 201603
